FAERS Safety Report 5034892-2 (Version None)
Quarter: 2006Q2

REPORT INFORMATION
  Report Type: 
  Country: None (occurrence: None)
  Receive Date: 20060627
  Receipt Date: 20031122
  Transmission Date: 20061013
  Serious: Yes (Death, Hospitalization)
  Sender: FDA-Public Use
  Company Number: PHEH2003US12112

PATIENT
  Age: 67 Year
  Sex: Male

DRUGS (17)
  1. ADALAT CC [Concomitant]
     Dosage: 90MG, BID
  2. CHROMAGEN FORTE [Concomitant]
     Dosage: ONE TABLET, QD
  3. MECLIZINE [Concomitant]
     Dosage: 12.5MG, TID
  4. PREVACID [Concomitant]
     Dosage: 30MG, QD
  5. LEVOTHYROXINE SODIUM [Concomitant]
     Dosage: 0.1MG, QD
  6. PLAVIX [Concomitant]
     Dosage: 75MG, QD
  7. FUROSEMIDE [Concomitant]
     Dosage: 40MG, QD
  8. ACTOS [Concomitant]
     Dosage: 30MG, QD
  9. COZAAR [Concomitant]
     Dosage: 100MG, QD
  10. POTASSIUM CHLORIDE [Concomitant]
     Dosage: 20MEQ, QD
  11. LIPITOR [Concomitant]
     Dosage: 40MG, QD
  12. LORTAB [Concomitant]
     Dosage: 7.5MG, Q4H, PRN
  13. NASONEX [Concomitant]
     Route: 045
  14. ALBUTEROL [Concomitant]
     Dosage: UNK, QID PRN
  15. ATROVENT [Concomitant]
  16. FORADIL [Suspect]
     Dosage: 1 PUFF, BID
  17. HYDROCHLOROTHIAZIDE [Concomitant]
     Dosage: 25MG, QD

REACTIONS (33)
  - ABDOMINAL DISTENSION [None]
  - ACUTE MYOCARDIAL INFARCTION [None]
  - ACUTE RESPIRATORY FAILURE [None]
  - AORTIC VALVE DISEASE [None]
  - AORTOGRAM ABNORMAL [None]
  - ARTERIAL CATHETERISATION [None]
  - ATRIAL FIBRILLATION [None]
  - CARDIAC ENZYMES INCREASED [None]
  - CARDIAC FAILURE CONGESTIVE [None]
  - CARDIAC SARCOIDOSIS [None]
  - CHEST PAIN [None]
  - CHRONIC OBSTRUCTIVE PULMONARY DISEASE [None]
  - CORONARY ANGIOPLASTY [None]
  - CORONARY ARTERIAL STENT INSERTION [None]
  - CORONARY ARTERY OCCLUSION [None]
  - DYSPNOEA [None]
  - EJECTION FRACTION DECREASED [None]
  - ELECTROCARDIOGRAM ST-T SEGMENT ABNORMAL [None]
  - FAECES DISCOLOURED [None]
  - GASTROINTESTINAL HAEMORRHAGE [None]
  - HEART RATE INCREASED [None]
  - HYPERTENSION [None]
  - HYPERTENSIVE HEART DISEASE [None]
  - ILEUS [None]
  - INTESTINAL OBSTRUCTION [None]
  - PERIPHERAL VASCULAR DISORDER [None]
  - RECTAL HAEMORRHAGE [None]
  - RENAL ARTERY OCCLUSION [None]
  - RENAL FAILURE [None]
  - TROPONIN INCREASED [None]
  - VASCULAR CAUTERISATION [None]
  - VENTRICULAR HYPERTROPHY [None]
  - WHEEZING [None]
